FAERS Safety Report 16889770 (Version 8)
Quarter: 2022Q2

REPORT INFORMATION
  Report Type: Report from Study
  Country: US (occurrence: None)
  Receive Date: 20191007
  Receipt Date: 20220516
  Transmission Date: 20220721
  Serious: Yes (Other)
  Sender: FDA-Public Use
  Company Number: US-ROCHE-2415060

PATIENT
  Age: 57 Year
  Sex: Female
  Weight: 94.8 kg

DRUGS (6)
  1. ATEZOLIZUMAB [Suspect]
     Active Substance: ATEZOLIZUMAB
     Indication: Cholangiocarcinoma
     Dosage: ON 27/AUG/2019, SHE RECEIVED LAST DOSE OF ATEZOLIZUMAB PRIOR TO ONSET OF SERIOUS ADVERSE EVENT.
     Route: 041
     Dates: start: 20180605
  2. ATEZOLIZUMAB [Suspect]
     Active Substance: ATEZOLIZUMAB
     Indication: Biliary neoplasm
  3. ATEZOLIZUMAB [Suspect]
     Active Substance: ATEZOLIZUMAB
     Indication: Bile duct adenocarcinoma
  4. COBIMETINIB [Suspect]
     Active Substance: COBIMETINIB
     Indication: Cholangiocarcinoma
     Dosage: ON 09/SEP/2021, SHE RECEIVED LAST DOSE OF COBIMETINIB PRIOR TO ONSET OF SERIOUS ADVERSE EVENT.
     Route: 048
     Dates: start: 20180605
  5. COBIMETINIB [Suspect]
     Active Substance: COBIMETINIB
     Indication: Biliary neoplasm
  6. COBIMETINIB [Suspect]
     Active Substance: COBIMETINIB
     Indication: Bile duct adenocarcinoma

REACTIONS (16)
  - Anaemia [Recovered/Resolved]
  - Hyponatraemia [Unknown]
  - Peripheral motor neuropathy [Unknown]
  - Myasthenia gravis [Recovering/Resolving]
  - Alopecia [Unknown]
  - Fatigue [Unknown]
  - Dermatitis [Unknown]
  - Diarrhoea [Unknown]
  - Hypoalbuminaemia [Unknown]
  - Anal incontinence [Unknown]
  - Peripheral sensory neuropathy [Unknown]
  - Blood creatinine increased [Unknown]
  - Lymphocyte count decreased [Unknown]
  - Hyperglycaemia [Unknown]
  - Hypothyroidism [Unknown]
  - Hypokalaemia [Unknown]

NARRATIVE: CASE EVENT DATE: 20190910
